FAERS Safety Report 25012504 (Version 1)
Quarter: 2025Q1

REPORT INFORMATION
  Report Type: Spontaneous
  Country: PT (occurrence: PT)
  Receive Date: 20250226
  Receipt Date: 20250226
  Transmission Date: 20250408
  Serious: Yes (Other)
  Sender: AUROBINDO
  Company Number: PT-INFARMED-T202501-915

PATIENT
  Age: 19 Year
  Sex: Female
  Weight: 65 kg

DRUGS (2)
  1. KETOROLAC [Suspect]
     Active Substance: KETOROLAC TROMETHAMINE
     Indication: Postoperative care
     Dosage: 30 MILLIGRAM, 3 TIMES A DAY (CETOROLAC 30MG 8H/8H)
     Route: 042
     Dates: start: 20250130, end: 20250131
  2. ACETAMINOPHEN [Suspect]
     Active Substance: ACETAMINOPHEN
     Indication: Postoperative care
     Dosage: 1000 MILLIGRAM, 3 TIMES A DAY (PARACETAMOL 1000MG 8H/8H)
     Route: 042
     Dates: start: 20250130, end: 20250131

REACTIONS (1)
  - Erythema [Recovering/Resolving]

NARRATIVE: CASE EVENT DATE: 20250131
